FAERS Safety Report 11796223 (Version 1)
Quarter: 2015Q4

REPORT INFORMATION
  Report Type: Spontaneous
  Country: DK (occurrence: DK)
  Receive Date: 20151203
  Receipt Date: 20151203
  Transmission Date: 20160305
  Serious: Yes (Other)
  Sender: FDA-Public Use
  Company Number: DK-ACTAVIS-2015-13509

PATIENT
  Sex: Female

DRUGS (1)
  1. DOCETAXEL (UNKNOWN) [Suspect]
     Active Substance: DOCETAXEL
     Indication: BREAST CANCER
     Dosage: UNK UNK, UNKNOWN
     Route: 065
     Dates: start: 2011

REACTIONS (1)
  - Parkinson^s disease [Unknown]
